FAERS Safety Report 14651621 (Version 2)
Quarter: 2018Q1

REPORT INFORMATION
  Report Type: Report from Study
  Country: DE (occurrence: DE)
  Receive Date: 20180317
  Receipt Date: 20180329
  Transmission Date: 20180509
  Serious: Yes (Hospitalization)
  Sender: FDA-Public Use
  Company Number: DE-ROCHE-2086544

PATIENT
  Age: 73 Year
  Sex: Male
  Weight: 77 kg

DRUGS (15)
  1. VENETOCLAX. [Suspect]
     Active Substance: VENETOCLAX
     Indication: CHRONIC LYMPHOCYTIC LEUKAEMIA
     Dosage: SUBSEQUENT DOSE ON 01/MAY/2017: 400 MG?CYCLE 1: 20 MG (2 TAB. AT 10 MG), D22-28, Q28D; CYCLE 2: 50 M
     Route: 048
     Dates: start: 20170309, end: 20170511
  2. BUDESONID [Concomitant]
     Active Substance: BUDESONIDE
     Route: 065
  3. TOREM [Concomitant]
     Active Substance: TORSEMIDE
     Route: 065
  4. RAMIPRIL. [Concomitant]
     Active Substance: RAMIPRIL
     Route: 065
  5. GLYCOPYRRONIUM BROMIDE [Concomitant]
     Active Substance: GLYCOPYRRONIUM
     Route: 065
  6. ASPIRIN. [Concomitant]
     Active Substance: ASPIRIN
     Route: 065
  7. OBINUTUZUMAB. [Suspect]
     Active Substance: OBINUTUZUMAB
     Indication: CHRONIC LYMPHOCYTIC LEUKAEMIA
     Dosage: SUBSEQUENT DOSE ON 15/MAR/2017: 1000 MG?CYCLE 1: 100 MG, D1; 900 MG, D1(2); 1000 MG, D8+15, Q28D; CY
     Route: 042
     Dates: start: 20170216, end: 20170511
  8. IBRUTINIB [Suspect]
     Active Substance: IBRUTINIB
     Indication: CHRONIC LYMPHOCYTIC LEUKAEMIA
     Dosage: SUBSEQUENT DOSE ON 01/MAY/2017: 420 MG?CYCLES 1-12: 420 MG, D1-28, Q28D; CYCLES 13-36: 420 MG, D1-28
     Route: 048
     Dates: start: 20170216, end: 20170511
  9. BISOPROLOL [Concomitant]
     Active Substance: BISOPROLOL
     Route: 065
  10. ACETYLSALICYLIC ACID [Concomitant]
     Active Substance: ASPIRIN
     Route: 065
  11. CLOPIDOGREL [Concomitant]
     Active Substance: CLOPIDOGREL BISULFATE
     Route: 065
  12. SPIRONOLACTONE. [Concomitant]
     Active Substance: SPIRONOLACTONE
     Route: 065
  13. DECORTIN [Concomitant]
     Active Substance: PREDNISONE
     Route: 065
  14. DELIX (GERMANY) [Concomitant]
     Route: 065
  15. SYMBICORT [Concomitant]
     Active Substance: BUDESONIDE\FORMOTEROL FUMARATE DIHYDRATE
     Route: 048
     Dates: start: 20170217

REACTIONS (1)
  - Myocardial infarction [Recovered/Resolved with Sequelae]

NARRATIVE: CASE EVENT DATE: 20180202
